FAERS Safety Report 4643421-4 (Version None)
Quarter: 2005Q2

REPORT INFORMATION
  Report Type: 
  Country: None (occurrence: None)
  Receive Date: 20050420
  Receipt Date: 20050420
  Transmission Date: 20051028
  Serious: Yes (Other)
  Sender: FDA-Public Use
  Company Number: None

PATIENT
  Sex: Female
  Weight: 70.3075 kg

DRUGS (4)
  1. ACLARO (HYDROQUINONE USP 4%) EMULSION [Suspect]
     Indication: SKIN DISCOLOURATION
     Dosage: APPLY TWICE DAILY TO AFFECTED AREAS
     Dates: start: 20050408
  2. ALLEGRA [Concomitant]
  3. M.V.I. [Concomitant]
  4. POTASSIUM CHLORIDE [Concomitant]

REACTIONS (3)
  - APPLICATION SITE ERYTHEMA [None]
  - APPLICATION SITE IRRITATION [None]
  - APPLICATION SITE PRURITUS [None]
